FAERS Safety Report 5588203-4 (Version None)
Quarter: 2008Q1

REPORT INFORMATION
  Report Type: 
  Country: None (occurrence: None)
  Receive Date: 20080109
  Receipt Date: 20080109
  Transmission Date: 20080703
  Serious: Yes (Life-Threatening, Hospitalization)
  Sender: FDA-Public Use
  Company Number: None

PATIENT
  Sex: Male
  Weight: 20.8655 kg

DRUGS (1)
  1. ETHOSUXIMIDE [Suspect]
     Indication: PETIT MAL EPILEPSY
     Dosage: 1.5ML  2XDAY  PO
     Route: 048
     Dates: start: 20071204, end: 20071214

REACTIONS (12)
  - ABDOMINAL PAIN UPPER [None]
  - CONTUSION [None]
  - DIARRHOEA [None]
  - FATIGUE [None]
  - LETHARGY [None]
  - LIP HAEMORRHAGE [None]
  - MOUTH HAEMORRHAGE [None]
  - MUCOSAL HAEMORRHAGE [None]
  - NAUSEA [None]
  - PAIN [None]
  - PETECHIAE [None]
  - VOMITING [None]
